FAERS Safety Report 7226787-0 (Version None)
Quarter: 2011Q1

REPORT INFORMATION
  Report Type: 
  Country: None (occurrence: None)
  Receive Date: 20110110
  Receipt Date: 20110110
  Transmission Date: 20110831
  Serious: Yes (Hospitalization)
  Sender: FDA-Public Use
  Company Number: None

PATIENT
  Age: 63 Year
  Sex: Male
  Weight: 76.2043 kg

DRUGS (10)
  1. GLUCOSAMINE/CHRONDROITIN [Concomitant]
  2. HYDROXYCHLOROQUINE [Suspect]
     Indication: PROSTATE CANCER
     Dosage: 600MG PO QD
     Route: 048
     Dates: start: 20101217, end: 20110102
  3. KEPPRA [Concomitant]
  4. ZOLADEX [Concomitant]
  5. ASPIRIN [Concomitant]
  6. VORINOSAT (SAHA) [Suspect]
     Indication: PROSTATE CANCER
     Dosage: 400 MG PO QD
     Route: 048
     Dates: start: 20101216, end: 20110102
  7. ASCORBIC ACID [Concomitant]
  8. FISH OIL [Concomitant]
  9. MULTIVIATMIN [Concomitant]
  10. TYLENOL-500 [Concomitant]

REACTIONS (3)
  - DIARRHOEA HAEMORRHAGIC [None]
  - ANAEMIA [None]
  - DYSPNOEA [None]
